FAERS Safety Report 4371449-0 (Version None)
Quarter: 2004Q2

REPORT INFORMATION
  Report Type: 
  Country: None (occurrence: None)
  Receive Date: 20040602
  Receipt Date: 20040521
  Transmission Date: 20050107
  Serious: Yes (Hospitalization)
  Sender: FDA-Public Use
  Company Number: US-JNJFOC-20040505213

PATIENT
  Age: 46 Year
  Sex: Female

DRUGS (5)
  1. INFLIXIMAB (INFLIXIMAB, RECOMBINANT) LYOPHILIZED POWDER [Suspect]
     Indication: RHEUMATOID ARTHRITIS
     Dosage: INTRAVENOUS
     Route: 042
     Dates: start: 20001122
  2. METHOTREXATE [Concomitant]
  3. FOLIC ACID [Concomitant]
  4. PREMARIN [Concomitant]
  5. NASAL SPRAY DAILY (ALL OTHER THERAPEUTIC PRODUCTS) [Concomitant]

REACTIONS (1)
  - GALLBLADDER DISORDER [None]
